FAERS Safety Report 10172729 (Version 3)
Quarter: 2014Q3

REPORT INFORMATION
  Report Type: Spontaneous
  Country: US (occurrence: None)
  Receive Date: 20140513
  Receipt Date: 20140731
  Transmission Date: 20150326
  Serious: Yes (Other)
  Sender: FDA-Public Use
  Company Number: 2014-US-005254

PATIENT
  Age: 50 Year
  Sex: Female
  Weight: 65.8 kg

DRUGS (6)
  1. XYREM [Suspect]
     Active Substance: SODIUM OXYBATE
     Indication: NARCOLEPSY
     Route: 048
     Dates: start: 200905, end: 200905
  2. ADDERALL (AMFETAMINE ASPARTATE, AMFETAMINE SULFATE, DEXAMFETAMINESACCHARATE, DEXAMFETAMINE SULFATE) [Concomitant]
  3. XYREM [Suspect]
     Active Substance: SODIUM OXYBATE
     Indication: CATAPLEXY
     Route: 048
     Dates: start: 200905, end: 200905
  4. MORPHINE (MORPHINE IMMEDIATE RELEASE) [Concomitant]
  5. XANAX [Concomitant]
     Active Substance: ALPRAZOLAM
  6. MORPHINE ER (MORPHINE EXTENDED RELEASE) [Concomitant]

REACTIONS (2)
  - Foot fracture [None]
  - Tendon rupture [None]
